FAERS Safety Report 8298724-1 (Version None)
Quarter: 2012Q2

REPORT INFORMATION
  Report Type: 
  Country: None (occurrence: None)
  Receive Date: 20120419
  Receipt Date: 20120410
  Transmission Date: 20120825
  Serious: Yes (Other)
  Sender: FDA-Public Use
  Company Number: FR-JNJFOC-20120405300

PATIENT
  Sex: Female

DRUGS (3)
  1. LEXOMIL [Suspect]
     Route: 048
  2. HALDOL [Suspect]
     Indication: PARANOIA
     Route: 048
     Dates: start: 20120109, end: 20120110
  3. LEXOMIL [Suspect]
     Indication: ANXIETY
     Route: 048
     Dates: start: 20111214, end: 20120110

REACTIONS (2)
  - LOSS OF CONSCIOUSNESS [None]
  - MALAISE [None]
